FAERS Safety Report 9474571 (Version 1)
Quarter: 2013Q3

REPORT INFORMATION
  Report Type: Spontaneous
  Country: US (occurrence: US)
  Receive Date: 20130823
  Receipt Date: 20130823
  Transmission Date: 20140515
  Serious: No
  Sender: FDA-Public Use
  Company Number: US-009507513-1308USA004745

PATIENT
  Age: 53 Year
  Sex: Male

DRUGS (1)
  1. TEMODAR [Suspect]
     Indication: OLIGOASTROCYTOMA
     Dosage: 150 MG, QD
     Route: 048

REACTIONS (1)
  - Diabetes insipidus [Recovered/Resolved]
